FAERS Safety Report 19795449 (Version 1)
Quarter: 2021Q3

REPORT INFORMATION
  Report Type: Spontaneous
  Country: US (occurrence: US)
  Receive Date: 20210903
  Receipt Date: 20210903
  Transmission Date: 20211014
  Serious: No
  Sender: FDA-Public Use
  Company Number: None

PATIENT
  Age: 66 Year
  Sex: Female
  Weight: 90 kg

DRUGS (19)
  1. IRON [Concomitant]
     Active Substance: IRON
  2. CAPECITABINE. [Suspect]
     Active Substance: CAPECITABINE
     Indication: BREAST CANCER
     Dosage: ?          OTHER FREQUENCY:AM,1500PM14/21DAYS;?
     Route: 048
     Dates: start: 20210506
  3. ACETAMINOPHEN 500MG [Concomitant]
     Active Substance: ACETAMINOPHEN
  4. EPINEPHRINE 1MG/10ML [Concomitant]
  5. GABAPENTIN 300MG [Concomitant]
     Active Substance: GABAPENTIN
  6. OXYCODONE 5MG [Concomitant]
     Active Substance: OXYCODONE
  7. CELEBRATE MULTI?COMPLETE [Concomitant]
  8. AMBIEN [Concomitant]
     Active Substance: ZOLPIDEM TARTRATE
  9. IBUPROFEN 200MG [Concomitant]
     Active Substance: IBUPROFEN
  10. MVI?CRANBERRY?FLORADIX SUPPLEMENT [Concomitant]
  11. CARAFATE [Concomitant]
     Active Substance: SUCRALFATE
  12. CYANOCOBALAMIN 1000MCG/ML [Concomitant]
  13. LYSINE 500MG [Concomitant]
  14. DIPHENHYDRAMINE 25MG [Concomitant]
     Active Substance: DIPHENHYDRAMINE
  15. POTASSIUM CHLORIDE 99MG [Concomitant]
  16. TRAMADOL 50MG [Concomitant]
     Active Substance: TRAMADOL
  17. TUMS 500MG [Concomitant]
  18. FAMOTIDINE 20MG/2ML [Concomitant]
  19. FUROSEMIDE 20MG [Concomitant]
     Active Substance: FUROSEMIDE

REACTIONS (7)
  - Skin discolouration [None]
  - Dry eye [None]
  - Skin exfoliation [None]
  - Therapy interrupted [None]
  - Burning sensation [None]
  - Vision blurred [None]
  - Diarrhoea [None]

NARRATIVE: CASE EVENT DATE: 20210903
